FAERS Safety Report 6835461-1 (Version None)
Quarter: 2010Q3

REPORT INFORMATION
  Report Type: 
  Country: None (occurrence: None)
  Receive Date: 20100713
  Receipt Date: 20100629
  Transmission Date: 20110219
  Serious: Yes (Other)
  Sender: FDA-Public Use
  Company Number: PHHY2010US35564

PATIENT
  Sex: Female
  Weight: 36.735 kg

DRUGS (7)
  1. EXJADE [Suspect]
     Indication: THALASSAEMIA
     Dosage: 1000 MG, QD
     Route: 048
     Dates: start: 20100201, end: 20100501
  2. EXJADE [Suspect]
     Indication: IRON OVERLOAD
  3. AVELOX [Concomitant]
     Dosage: UNK
  4. AZITHROMYCIN [Concomitant]
     Dosage: UNK
  5. LASIX [Concomitant]
     Dosage: 40 MG/DAY
  6. K-DUR [Concomitant]
  7. TRACLEER [Concomitant]

REACTIONS (6)
  - EAR INFECTION [None]
  - EFFUSION [None]
  - HYPOACUSIS [None]
  - MIXED DEAFNESS [None]
  - OTITIS MEDIA [None]
  - TYMPANIC MEMBRANE DISORDER [None]
